FAERS Safety Report 8138459-9 (Version None)
Quarter: 2012Q1

REPORT INFORMATION
  Report Type: 
  Country: None (occurrence: None)
  Receive Date: 20120215
  Receipt Date: 20120210
  Transmission Date: 20120608
  Serious: Yes (Death, Hospitalization)
  Sender: FDA-Public Use
  Company Number: US-BRISTOL-MYERS SQUIBB COMPANY-16395147

PATIENT
  Age: 55 Year
  Sex: Male
  Weight: 127 kg

DRUGS (3)
  1. TAXOL [Suspect]
     Indication: NON-SMALL CELL LUNG CANCER
     Dosage: LAST INF:16JAN2012
     Dates: start: 20110512
  2. ERBITUX [Suspect]
     Indication: NON-SMALL CELL LUNG CANCER
     Dosage: LAST DT:24JAN2012
     Dates: start: 20110512
  3. CARBOPLATIN [Suspect]
     Indication: NON-SMALL CELL LUNG CANCER
     Dosage: LAST DT:16JAN2012
     Dates: start: 20110512

REACTIONS (2)
  - PULMONARY OEDEMA [None]
  - ACUTE CORONARY SYNDROME [None]
